FAERS Safety Report 8936100 (Version 2)
Quarter: 2013Q1

REPORT INFORMATION
  Report Type: Spontaneous
  Country: US (occurrence: US)
  Receive Date: 20121130
  Receipt Date: 20130321
  Transmission Date: 20140127
  Serious: No
  Sender: FDA-Public Use
  Company Number: US-009507513-1211USA012007

PATIENT
  Sex: Male

DRUGS (1)
  1. VICTRELIS [Suspect]
     Indication: HEPATITIS C
     Dosage: 800 MG, TID
     Route: 048
     Dates: start: 201206

REACTIONS (5)
  - Haematemesis [Unknown]
  - Somnolence [Recovered/Resolved]
  - Back pain [Recovered/Resolved]
  - Dysgeusia [Unknown]
  - Decreased appetite [Recovered/Resolved]
